FAERS Safety Report 7573237-0 (Version None)
Quarter: 2011Q2

REPORT INFORMATION
  Report Type: 
  Country: None (occurrence: None)
  Receive Date: 20110627
  Receipt Date: 20110613
  Transmission Date: 20111010
  Serious: Yes (Hospitalization)
  Sender: FDA-Public Use
  Company Number: US-MYLANLABS-2011S1012580

PATIENT
  Age: 49 Year
  Sex: Female

DRUGS (2)
  1. FENTANYL [Suspect]
     Route: 042
  2. METHADONE HCL [Suspect]
     Indication: DEPENDENCE
     Dosage: 140 MG/DAY
     Route: 065

REACTIONS (1)
  - HYPERAESTHESIA [None]
